FAERS Safety Report 7683047-1 (Version None)
Quarter: 2011Q3

REPORT INFORMATION
  Report Type: 
  Country: None (occurrence: None)
  Receive Date: 20110815
  Receipt Date: 20110809
  Transmission Date: 20111222
  Serious: Yes (Death)
  Sender: FDA-Public Use
  Company Number: FR-ASTRAZENECA-2011SE47691

PATIENT
  Age: 19762 Day
  Sex: Male

DRUGS (18)
  1. VOGALENE [Concomitant]
  2. ATORVASTATIN CALCIUM [Suspect]
     Route: 048
  3. ONDANSERTRON HYDROCHLORIDE [Concomitant]
     Route: 042
     Dates: start: 20110701, end: 20110701
  4. VENOFER [Concomitant]
  5. OLIGOCLINOMEL [Concomitant]
  6. HEXAQUINE [Concomitant]
  7. FOSRENOL [Concomitant]
  8. OROCAL [Concomitant]
  9. UN-ALPHA [Suspect]
     Route: 048
  10. EMLA [Concomitant]
  11. LEXOMIL [Concomitant]
  12. ACETAMINOPHEN [Concomitant]
  13. DEDROGYL [Concomitant]
  14. NEXIUM [Suspect]
     Route: 048
  15. TRABECTEDIN [Suspect]
     Route: 042
     Dates: start: 20110701, end: 20110702
  16. NEORECORMON [Suspect]
     Route: 065
  17. KAYEXALATE [Suspect]
     Route: 048
  18. SPAGULAX [Concomitant]

REACTIONS (2)
  - SUDDEN DEATH [None]
  - CHEST PAIN [None]
